FAERS Safety Report 5252013-8 (Version None)
Quarter: 2007Q1

REPORT INFORMATION
  Report Type: 
  Country: None (occurrence: None)
  Receive Date: 20070223
  Receipt Date: 20070213
  Transmission Date: 20070707
  Serious: Yes (Other)
  Sender: FDA-Public Use
  Company Number: US-GDP-0714343

PATIENT
  Sex: Female

DRUGS (4)
  1. DIFFERIN [Suspect]
     Indication: ACNE
     Dosage: 1 APP QD TP
     Route: 061
  2. BENZACLIN [Suspect]
  3. BENZACLIN [Suspect]
  4. LEXAPRO [Concomitant]

REACTIONS (7)
  - DIARRHOEA HAEMORRHAGIC [None]
  - DIZZINESS [None]
  - ENTEROCOLITIS [None]
  - HYPOAESTHESIA ORAL [None]
  - LIP SWELLING [None]
  - MUSCLE SPASMS [None]
  - SYNCOPE [None]
